FAERS Safety Report 9549592 (Version 2)
Quarter: 2013Q4

REPORT INFORMATION
  Report Type: Spontaneous
  Country: US (occurrence: US)
  Receive Date: 20130924
  Receipt Date: 20131004
  Transmission Date: 20140711
  Serious: Yes (Other)
  Sender: FDA-Public Use
  Company Number: US-B.I. PHARMACEUTICALS,INC./RIDGEFIELD-2013-BI-29476PF

PATIENT
  Sex: Female

DRUGS (17)
  1. SPIRIVA [Suspect]
  2. LYRICA [Concomitant]
  3. PROTONIX [Concomitant]
  4. PRADAXA [Concomitant]
  5. METOPROLOL SUCCINATE [Concomitant]
  6. ENALAPRIL MALEATE [Concomitant]
  7. POTASSIUM CHLORIDE [Concomitant]
     Dosage: DOSE PER APPLICATION: ER MEQ
  8. SULFAZENE [Concomitant]
  9. PANTOPRAZOLE SOD [Concomitant]
  10. DIOXIN [Concomitant]
  11. FUROSEMIDE [Concomitant]
  12. ATORVASTATIN [Concomitant]
  13. PREDNISONE [Concomitant]
  14. ALLOPURINOL [Concomitant]
  15. ADVAIR [Concomitant]
     Dosage: DOSE PER APPLICATION: 100/50
  16. LEVAMIR [Concomitant]
     Dosage: DAILY DOSE: FLEXPEN
  17. NOVALOG [Concomitant]
     Dosage: DAILY DOSE: FLEXPEN

REACTIONS (1)
  - Lung neoplasm malignant [Unknown]
